FAERS Safety Report 7491855-5 (Version None)
Quarter: 2011Q2

REPORT INFORMATION
  Report Type: 
  Country: None (occurrence: None)
  Receive Date: 20110519
  Receipt Date: 20110513
  Transmission Date: 20111010
  Serious: Yes (Other)
  Sender: FDA-Public Use
  Company Number: CHPA2011US06695

PATIENT
  Age: 19 Year
  Sex: Female

DRUGS (1)
  1. THERAFLU DAYTIME SEVERE COLD + COUGH [Suspect]
     Indication: NASOPHARYNGITIS
     Dosage: 1 DF, BID
     Route: 048
     Dates: start: 20110512, end: 20110512

REACTIONS (9)
  - THROAT IRRITATION [None]
  - OEDEMA MOUTH [None]
  - INCREASED UPPER AIRWAY SECRETION [None]
  - PHARYNGEAL OEDEMA [None]
  - THROAT TIGHTNESS [None]
  - COUGH [None]
  - WHEEZING [None]
  - ASTHMA [None]
  - DRY THROAT [None]
